FAERS Safety Report 4559345-7 (Version None)
Quarter: 2005Q1

REPORT INFORMATION
  Report Type: 
  Country: None (occurrence: None)
  Receive Date: 20050124
  Receipt Date: 20050114
  Transmission Date: 20050727
  Serious: Yes (Other)
  Sender: FDA-Public Use
  Company Number: US-MERCK-0501USA02726

PATIENT
  Age: 76 Year
  Sex: Female

DRUGS (1)
  1. ALDORIL 15 [Suspect]
     Indication: HYPERTENSION
     Route: 048

REACTIONS (4)
  - LYMPHADENITIS [None]
  - SALIVARY GLAND CALCULUS [None]
  - SIALIDOSIS [None]
  - SIALOADENITIS [None]
